FAERS Safety Report 13398440 (Version 1)
Quarter: 2017Q2

REPORT INFORMATION
  Report Type: Spontaneous
  Country: US (occurrence: US)
  Receive Date: 20170403
  Receipt Date: 20170403
  Transmission Date: 20170830
  Serious: Yes (Death)
  Sender: FDA-Public Use
  Company Number: US-HAEMONETICS CORP-1064943

PATIENT
  Age: 41 Year
  Sex: Male
  Weight: 126.36 kg

DRUGS (1)
  1. HAEMONETICS ANTICOAGULANT SODIUM CITRATE [Suspect]
     Active Substance: TRISODIUM CITRATE DIHYDRATE
     Indication: ANTICOAGULANT THERAPY
     Route: 042
     Dates: start: 20170301, end: 20170301

REACTIONS (3)
  - Staphylococcal infection [None]
  - Acute endocarditis [None]
  - Death [Fatal]

NARRATIVE: CASE EVENT DATE: 20170312
